FAERS Safety Report 10418603 (Version 1)
Quarter: 2014Q3

REPORT INFORMATION
  Report Type: Spontaneous
  Country: US (occurrence: None)
  Receive Date: 20140828
  Receipt Date: 20140828
  Transmission Date: 20150326
  Serious: Yes (Other)
  Sender: FDA-Public Use
  Company Number: None

PATIENT
  Age: 28 Year
  Sex: Female

DRUGS (1)
  1. ADDERALL GENERIC 20 MG MALLINCKRODT PHARMACEUTICAL [Suspect]
     Active Substance: AMPHETAMINE ASPARTATE\AMPHETAMINE SULFATE\DEXTROAMPHETAMINE SACCHARATE\DEXTROAMPHETAMINE SULFATE
     Indication: ATTENTION DEFICIT/HYPERACTIVITY DISORDER
     Dosage: 1 PILL MORNING .5 NIGHT ONCE DAILY TAKEN BY MOUTH
     Route: 048
     Dates: start: 20140826, end: 20140827

REACTIONS (2)
  - Chest pain [None]
  - Headache [None]

NARRATIVE: CASE EVENT DATE: 20140826
